FAERS Safety Report 15232242 (Version 7)
Quarter: 2019Q1

REPORT INFORMATION
  Report Type: Spontaneous
  Country: US (occurrence: US)
  Receive Date: 20180802
  Receipt Date: 20190226
  Transmission Date: 20190417
  Serious: No
  Sender: FDA-Public Use
  Company Number: US-PFIZER INC-2018310433

PATIENT
  Age: 56 Year
  Sex: Female
  Weight: 62 kg

DRUGS (2)
  1. IBRANCE [Suspect]
     Active Substance: PALBOCICLIB
     Dosage: 75 MG, CYCLIC (D1-D21Q28D )
     Route: 048
     Dates: start: 20180614
  2. IBRANCE [Suspect]
     Active Substance: PALBOCICLIB
     Indication: BREAST CANCER METASTATIC
     Dosage: 100 MG, CYCLIC (DAYS 1-21 Q28 DAYS)
     Route: 048
     Dates: start: 20180614, end: 201809

REACTIONS (10)
  - Menopause [Unknown]
  - Rash pruritic [Unknown]
  - Skin burning sensation [Unknown]
  - White blood cell count decreased [Recovering/Resolving]
  - Pain [Unknown]
  - Neoplasm progression [Unknown]
  - Rash generalised [Unknown]
  - Hot flush [Unknown]
  - Rash erythematous [Unknown]
  - Skin injury [Unknown]

NARRATIVE: CASE EVENT DATE: 2018
